FAERS Safety Report 26186454 (Version 1)
Quarter: 2025Q4

REPORT INFORMATION
  Report Type: Spontaneous
  Country: US (occurrence: None)
  Receive Date: 20251219
  Receipt Date: 20251219
  Transmission Date: 20260118
  Serious: Yes (Life-Threatening, Hospitalization)
  Sender: FDA-CTU
  Company Number: None

PATIENT
  Age: 52 Year
  Sex: Male
  Weight: 226 kg

DRUGS (1)
  1. EMPAGLIFLOZIN\METFORMIN HYDROCHLORIDE [Suspect]
     Active Substance: EMPAGLIFLOZIN\METFORMIN HYDROCHLORIDE
     Indication: Diabetes mellitus
     Dosage: 2  TAB AM PO ??TAKE TWO TABLETS EVERY MORNING FOR DM
     Route: 048
     Dates: start: 20250107, end: 20250805

REACTIONS (2)
  - Euglycaemic diabetic ketoacidosis [None]
  - Pancreatitis acute [None]

NARRATIVE: CASE EVENT DATE: 20250805
